FAERS Safety Report 17609240 (Version 2)
Quarter: 2025Q2

REPORT INFORMATION
  Report Type: Spontaneous
  Country: GB (occurrence: GB)
  Receive Date: 20200401
  Receipt Date: 20250505
  Transmission Date: 20250716
  Serious: Yes (Hospitalization)
  Sender: TEVA
  Company Number: None

PATIENT
  Age: 82 Year
  Sex: Male

DRUGS (7)
  1. LANSOPRAZOLE [Suspect]
     Active Substance: LANSOPRAZOLE
     Dosage: DOSAGE TEXT: MORNING 15 MG
     Route: 048
     Dates: end: 20200306
  2. FELODIPINE [Suspect]
     Active Substance: FELODIPINE
     Dosage: DOSAGE TEXT: MORNING 10 MG
     Route: 048
     Dates: end: 20200307
  3. SPIRONOLACTONE [Suspect]
     Active Substance: SPIRONOLACTONE
     Dosage: DOSAGE TEXT: MORNING 25 MG
     Route: 048
     Dates: end: 20200306
  4. ATENOLOL [Suspect]
     Active Substance: ATENOLOL
     Dosage: DOSAGE TEXT: MORNING 50 MG
     Route: 048
     Dates: end: 20200309
  5. APIXABAN [Concomitant]
     Active Substance: APIXABAN
     Dosage: DOSAGE TEXT: 10 MG
     Route: 048
  6. CETRABEN [Concomitant]
     Route: 061
  7. PERINDOPRIL ERBUMINE [Concomitant]
     Active Substance: PERINDOPRIL ERBUMINE
     Dosage: DOSAGE TEXT: NIGHT, 8 MG
     Route: 048

REACTIONS (5)
  - Lower respiratory tract infection [Unknown]
  - Atrial fibrillation [Unknown]
  - Oedema [Unknown]
  - Dyspnoea [Unknown]
  - Hyponatraemia [Recovering/Resolving]

NARRATIVE: CASE EVENT DATE: 20200306
